FAERS Safety Report 7528896-5 (Version None)
Quarter: 2011Q2

REPORT INFORMATION
  Report Type: 
  Country: None (occurrence: None)
  Receive Date: 20110520
  Receipt Date: 20110204
  Transmission Date: 20111010
  Serious: No
  Sender: FDA-Public Use
  Company Number: 023411

PATIENT
  Sex: Female

DRUGS (3)
  1. LACOSAMIDE [Suspect]
     Dosage: (100 MG BID), (150 MG, 50 MG Q AM AND 100 MG QHS), (225MG, 100 MG Q AM AND 125 QHS), (100 MG BID)
     Dates: start: 20100901
  2. LACOSAMIDE [Suspect]
     Dosage: (100 MG BID), (150 MG, 50 MG Q AM AND 100 MG QHS), (225MG, 100 MG Q AM AND 125 QHS), (100 MG BID)
     Dates: start: 20101101
  3. LACOSAMIDE [Suspect]
     Dosage: (100 MG BID), (150 MG, 50 MG Q AM AND 100 MG QHS), (225MG, 100 MG Q AM AND 125 QHS), (100 MG BID)
     Dates: start: 20100801

REACTIONS (4)
  - CONVULSION [None]
  - INAPPROPRIATE AFFECT [None]
  - ABNORMAL DREAMS [None]
  - WEIGHT INCREASED [None]
